FAERS Safety Report 23814081 (Version 1)
Quarter: 2024Q2

REPORT INFORMATION
  Report Type: Spontaneous
  Country: US (occurrence: US)
  Receive Date: 20240503
  Receipt Date: 20240503
  Transmission Date: 20240716
  Serious: No
  Sender: FDA-Public Use
  Company Number: US-GALDERMA-US2024001960

PATIENT

DRUGS (4)
  1. PROACTIV MD ADAPALENE ACNE TREATMENT [Suspect]
     Active Substance: ADAPALENE
     Indication: Hypersensitivity
     Dosage: 1 DOSAGE FORM, QWK
     Route: 061
  2. PROACTIV MD ADAPALENE ACNE TREATMENT [Suspect]
     Active Substance: ADAPALENE
     Dosage: 1 DOSAGE FORM, BIW
     Route: 061
  3. Proactiv MD Ultra Gentle Cleanser [Concomitant]
     Indication: Product used for unknown indication
     Dosage: 1 DOSAGE FORM, QD
     Route: 061
  4. Proactiv MD Ultra Hydrating Moisturizer [Concomitant]
     Indication: Product used for unknown indication
     Dosage: 1 DOSAGE FORM, QD
     Route: 061

REACTIONS (4)
  - Drug ineffective for unapproved indication [Recovered/Resolved]
  - Intentional product use issue [Recovered/Resolved]
  - Off label use [Recovered/Resolved]
  - Intentional underdose [Recovered/Resolved]
